FAERS Safety Report 9349974 (Version 2)
Quarter: 2013Q2

REPORT INFORMATION
  Report Type: Report from Study
  Country: US (occurrence: US)
  Receive Date: 20130614
  Receipt Date: 20130619
  Transmission Date: 20140414
  Serious: Yes (Other)
  Sender: FDA-Public Use
  Company Number: PHEH2013US012072

PATIENT
  Sex: Male

DRUGS (2)
  1. SANDOSTATIN LAR DEPOT [Suspect]
     Indication: METASTATIC CARCINOID TUMOUR
     Dosage: 30 MG, EVERY 4 WEEKS
     Route: 030
  2. SANDOSTATIN LAR DEPOT [Suspect]
     Dosage: 60 MG, EVERY 4 WEEKS
     Route: 030

REACTIONS (4)
  - Gastric cancer [Unknown]
  - Metastases to liver [Unknown]
  - Flushing [Recovered/Resolved]
  - Diarrhoea [Recovered/Resolved]
